FAERS Safety Report 8264591-5 (Version None)
Quarter: 2012Q2

REPORT INFORMATION
  Report Type: 
  Country: None (occurrence: None)
  Receive Date: 20120404
  Receipt Date: 20120329
  Transmission Date: 20120825
  Serious: Yes (Other)
  Sender: FDA-Public Use
  Company Number: 2010MA005116

PATIENT
  Sex: Female
  Weight: 77.1115 kg

DRUGS (37)
  1. CLARITIN [Concomitant]
  2. FAMVIR [Concomitant]
  3. PREMARIN [Concomitant]
  4. ZYRTEC [Concomitant]
  5. DIOVAN [Concomitant]
  6. HYDROCODONE BITARTRATE AND ACETAMINOPHEN [Concomitant]
  7. PRILOSEC [Concomitant]
  8. METOCLOPRAMIDE [Suspect]
     Indication: GASTROOESOPHAGEAL REFLUX DISEASE
     Dosage: 10 MG;PO
     Route: 048
     Dates: start: 20000809, end: 20081101
  9. EVISTA [Concomitant]
  10. IMIPRAMINE [Concomitant]
  11. TRAMADOL HCL [Concomitant]
  12. CIPROFLOXACIN HCL [Concomitant]
  13. DARVOCET [Concomitant]
  14. DEXAMETHASONE [Concomitant]
  15. DOXYCYCLINE [Concomitant]
  16. PROMETHAZINE [Concomitant]
  17. PROPRANOLOL [Concomitant]
  18. ULTRAM [Concomitant]
  19. VIOXX [Concomitant]
  20. CALCIUM CARBONATE [Concomitant]
  21. CELEBREX [Concomitant]
  22. CLONIDINE [Concomitant]
  23. MELOXICAM [Concomitant]
  24. PROXY-N/APAP [Concomitant]
  25. CYCLOBENZAPRINE [Concomitant]
  26. HYDROCHLOROTHIAZIDE [Concomitant]
  27. MECLIZINE [Concomitant]
  28. M.V.I. [Concomitant]
  29. CARISOPRODOL [Concomitant]
  30. DIFLUCAN [Concomitant]
  31. LORAZEPAM [Concomitant]
  32. METFORMIN HCL [Concomitant]
  33. MOBIC [Concomitant]
  34. PREDNISONE TAB [Concomitant]
  35. VITAMIN E [Concomitant]
  36. ALPRAZOLAM [Concomitant]
  37. PHENAZOPYRIDINE HCL TAB [Concomitant]

REACTIONS (27)
  - DYSKINESIA [None]
  - MICROGRAPHIA [None]
  - PARKINSON'S DISEASE [None]
  - DYSARTHRIA [None]
  - HERNIA REPAIR [None]
  - TREMOR [None]
  - RESTING TREMOR [None]
  - CHOLECYSTECTOMY [None]
  - COUGH [None]
  - HYPERTENSION [None]
  - DIABETES MELLITUS [None]
  - GASTROOESOPHAGEAL REFLUX DISEASE [None]
  - MOTOR DYSFUNCTION [None]
  - INCORRECT DRUG ADMINISTRATION DURATION [None]
  - EXTRAPYRAMIDAL DISORDER [None]
  - HYSTERECTOMY [None]
  - GAIT DISTURBANCE [None]
  - CLUMSINESS [None]
  - TARDIVE DYSKINESIA [None]
  - ESSENTIAL TREMOR [None]
  - MEDICAL DEVICE COMPLICATION [None]
  - ECONOMIC PROBLEM [None]
  - EMOTIONAL DISTRESS [None]
  - PARKINSONIAN GAIT [None]
  - MASKED FACIES [None]
  - HYPERKINESIA [None]
  - HYPOKINESIA [None]
